FAERS Safety Report 20865643 (Version 1)
Quarter: 2022Q2

REPORT INFORMATION
  Report Type: Report from Study
  Country: CA (occurrence: CA)
  Receive Date: 20220524
  Receipt Date: 20220524
  Transmission Date: 20220721
  Serious: Yes (Other)
  Sender: FDA-Public Use
  Company Number: CA-JNJFOC-20220542010

PATIENT
  Age: 49 Year
  Sex: Female

DRUGS (10)
  1. SELEXIPAG [Suspect]
     Active Substance: SELEXIPAG
     Indication: Pulmonary hypertension
     Route: 048
     Dates: start: 20200729
  2. SELEXIPAG [Suspect]
     Active Substance: SELEXIPAG
     Indication: Connective tissue disorder
  3. MACITENTAN [Suspect]
     Active Substance: MACITENTAN
     Indication: Pulmonary hypertension
     Route: 048
     Dates: start: 20190612
  4. MACITENTAN [Suspect]
     Active Substance: MACITENTAN
     Indication: Connective tissue disorder
  5. ADCIRCA [Concomitant]
     Active Substance: TADALAFIL
  6. SPIRONOLACTONE [Concomitant]
     Active Substance: SPIRONOLACTONE
  7. FUROSEMIDE [Concomitant]
     Active Substance: FUROSEMIDE
  8. PANTOPRAZOLE [Concomitant]
     Active Substance: PANTOPRAZOLE
  9. RIVAROXABAN [Concomitant]
     Active Substance: RIVAROXABAN
  10. ZOLOFT [Concomitant]
     Active Substance: SERTRALINE HYDROCHLORIDE

REACTIONS (4)
  - Overdose [Recovered/Resolved]
  - Diarrhoea [Recovered/Resolved]
  - Chest discomfort [Recovered/Resolved]
  - Flushing [Recovered/Resolved]

NARRATIVE: CASE EVENT DATE: 20220516
